FAERS Safety Report 5254533-9 (Version None)
Quarter: 2007Q1

REPORT INFORMATION
  Report Type: 
  Country: None (occurrence: None)
  Receive Date: 20070302
  Receipt Date: 20070301
  Transmission Date: 20070707
  Serious: Yes (Hospitalization)
  Sender: FDA-Public Use
  Company Number: AU-BRISTOL-MYERS SQUIBB COMPANY-13696992

PATIENT
  Sex: Female

DRUGS (3)
  1. AVAPRO [Suspect]
     Route: 048
  2. SOTALOL HYDROCHLORIDE [Concomitant]
  3. WARFARIN SODIUM [Concomitant]

REACTIONS (3)
  - ATRIAL FIBRILLATION [None]
  - GLAUCOMA [None]
  - VISUAL FIELD DEFECT [None]
